FAERS Safety Report 23884265 (Version 1)
Quarter: 2024Q2

REPORT INFORMATION
  Report Type: Spontaneous
  Country: US (occurrence: US)
  Receive Date: 20240522
  Receipt Date: 20240522
  Transmission Date: 20240716
  Serious: No
  Sender: FDA-Public Use
  Company Number: US-MYLANLABS-2024M1042873

PATIENT
  Sex: Female
  Weight: 79.37 kg

DRUGS (6)
  1. LISDEXAMFETAMINE DIMESYLATE [Suspect]
     Active Substance: LISDEXAMFETAMINE DIMESYLATE
     Indication: Attention deficit hyperactivity disorder
     Dosage: 40 MILLIGRAM, QD (ONCE A DAY)
     Route: 065
  2. COLLAGEN [Concomitant]
     Active Substance: COLLAGEN
     Indication: Hair disorder
     Dosage: 2 DOSAGE FORM
     Route: 065
  3. VITAMIN C [Concomitant]
     Active Substance: ASCORBIC ACID
     Indication: Hair disorder
     Dosage: UNK
     Route: 065
  4. VITAMIN D NOS [Concomitant]
     Active Substance: CHOLECALCIFEROL\ERGOCALCIFEROL
     Indication: Bone density abnormal
     Dosage: 100 MICROGRAM
     Route: 065
  5. MIDOL [Concomitant]
     Active Substance: IBUPROFEN
     Indication: Irritability
     Dosage: 1 DOSAGE FORM
     Route: 065
  6. MIDOL [Concomitant]
     Active Substance: IBUPROFEN
     Indication: Hair disorder

REACTIONS (1)
  - Drug ineffective [Unknown]
